FAERS Safety Report 4969721-6 (Version None)
Quarter: 2006Q2

REPORT INFORMATION
  Report Type: 
  Country: None (occurrence: None)
  Receive Date: 20060411
  Receipt Date: 20060403
  Transmission Date: 20061013
  Serious: Yes (Other)
  Sender: FDA-Public Use
  Company Number: GB-MERCK-0604GBR00038

PATIENT
  Age: 50 Year
  Sex: Female

DRUGS (1)
  1. TIMOPTIC [Suspect]
     Indication: GLAUCOMA
     Route: 047

REACTIONS (1)
  - DEAFNESS [None]
